FAERS Safety Report 7512338 (Version 5)
Quarter: 2012Q4

REPORT INFORMATION
  Report Type: 
  Country: AU (occurrence: AU)
  Receive Date: 20100730
  Receipt Date: 20120911
  Transmission Date: 20130627
  Serious: Yes (Other)
  Sender: FDA-Public Use
  Company Number: AU-PFIZER INC-AU-WYE-G06431410

PATIENT
  Age: 29 Year
  Sex: Male

DRUGS (4)
  1. EFEXOR XR [Suspect]
     Indication: DEPRESSION
     Dosage: 37.5 mg, UNK
     Dates: start: 201004, end: 201004
  2. EFEXOR XR [Suspect]
     Indication: OBSESSIVE-COMPULSIVE DISORDER
     Dosage: 150 mg, daily
     Dates: start: 201004, end: 201004
  3. EFEXOR XR [Suspect]
     Dosage: 225 mg, daily
     Dates: start: 201004, end: 201004
  4. EFEXOR XR [Suspect]
     Dosage: 300 mg, daily
     Dates: start: 201004, end: 201006

REACTIONS (8)
  - Compulsive sexual behaviour [Recovered/Resolved]
  - Pathological gambling [Recovered/Resolved]
  - Blunted affect [Unknown]
  - Bruxism [Unknown]
  - Muscle tightness [Unknown]
  - Nausea [Unknown]
  - Sedation [Unknown]
  - Abnormal behaviour [Unknown]
